FAERS Safety Report 10076296 (Version 1)
Quarter: 2014Q2

REPORT INFORMATION
  Report Type: Report from Study
  Country: US (occurrence: US)
  Receive Date: 20140414
  Receipt Date: 20140414
  Transmission Date: 20141212
  Serious: Yes (Other)
  Sender: FDA-Public Use
  Company Number: US-BAXTER-2014BAX017716

PATIENT
  Age: 64 Year
  Sex: Female

DRUGS (5)
  1. ARALAST NP [Suspect]
     Indication: ALPHA-1 ANTI-TRYPSIN DEFICIENCY
     Route: 042
     Dates: start: 20130531
  2. OXYGEN [Concomitant]
     Indication: CHRONIC OBSTRUCTIVE PULMONARY DISEASE
  3. PRAVASTATIN [Concomitant]
     Indication: BLOOD CHOLESTEROL INCREASED
  4. CLARITIN [Concomitant]
     Indication: HYPERSENSITIVITY
     Dates: end: 201403
  5. ZYRTEC [Concomitant]
     Indication: HYPERSENSITIVITY
     Dates: start: 201403

REACTIONS (3)
  - Dyspnoea [Recovered/Resolved]
  - Sinusitis [Recovered/Resolved]
  - Renal failure [Unknown]
